FAERS Safety Report 22240530 (Version 1)
Quarter: 2023Q2

REPORT INFORMATION
  Report Type: Spontaneous
  Country: RU (occurrence: None)
  Receive Date: 20230421
  Receipt Date: 20230421
  Transmission Date: 20230721
  Serious: Yes (Other)
  Sender: FDA-Public Use
  Company Number: 2023A090814

PATIENT

DRUGS (5)
  1. ROSUVASTATIN [Suspect]
     Active Substance: ROSUVASTATIN
     Route: 064
  2. ASPIRIN [Suspect]
     Active Substance: ASPIRIN
     Dosage: UNKNOWN
     Route: 064
  3. CLOPIDOGREL [Suspect]
     Active Substance: CLOPIDOGREL BISULFATE
     Dosage: UNKNOWN
     Route: 064
  4. PERINDOPRIL [Suspect]
     Active Substance: PERINDOPRIL
     Dosage: UNKNOWN
     Route: 064
  5. BISOPROLOL [Suspect]
     Active Substance: BISOPROLOL
     Route: 064

REACTIONS (2)
  - Foetal exposure during pregnancy [Unknown]
  - Foetal growth restriction [Unknown]
